FAERS Safety Report 24444261 (Version 2)
Quarter: 2024Q4

REPORT INFORMATION
  Report Type: Report from Study
  Country: US (occurrence: US)
  Receive Date: 20241016
  Receipt Date: 20241017
  Transmission Date: 20250114
  Serious: No
  Sender: ROCHE
  Company Number: US-ROCHE-2714886

PATIENT
  Age: 76 Year
  Sex: Female

DRUGS (7)
  1. RITUXAN [Suspect]
     Active Substance: RITUXIMAB
     Indication: Chronic lymphocytic inflammation with pontine perivascular enhancement responsive to steroids
     Dosage: SPLIT DOSES ;ONGOING: YES, EVERY 6 MONTHS
     Route: 042
     Dates: start: 20201030
  2. RITUXAN [Suspect]
     Active Substance: RITUXIMAB
     Indication: Nervous system disorder
  3. OMEPRAZOLE [Concomitant]
     Active Substance: OMEPRAZOLE
     Indication: Gastrooesophageal reflux disease
     Dosage: ONGOING: YES
     Route: 065
     Dates: start: 201706
  4. PREDNISONE [Concomitant]
     Active Substance: PREDNISONE
  5. CALCIUM CARBONATE\CHOLECALCIFEROL [Concomitant]
     Active Substance: CALCIUM CARBONATE\CHOLECALCIFEROL
     Dosage: ONGOING: YES
     Dates: start: 2019
  6. ATENOLOL [Concomitant]
     Active Substance: ATENOLOL
     Indication: Hypertension
     Dosage: ONGOING: YES
     Dates: start: 2020
  7. CODEINE [Concomitant]
     Active Substance: CODEINE

REACTIONS (2)
  - Off label use [Unknown]
  - No adverse event [Unknown]

NARRATIVE: CASE EVENT DATE: 20201030
